FAERS Safety Report 7396926-X (Version None)
Quarter: 2011Q1

REPORT INFORMATION
  Report Type: 
  Country: None (occurrence: None)
  Receive Date: 20110328
  Receipt Date: 20110318
  Transmission Date: 20110831
  Serious: Yes (Hospitalization)
  Sender: FDA-Public Use
  Company Number: GB-ACCORD-008444

PATIENT
  Age: 36 Year
  Sex: Female

DRUGS (9)
  1. ETOPOSIDE [Suspect]
     Indication: OVARIAN GERM CELL CANCER
     Dosage: 100.00-MG/M2
  2. CYCLOPHOSPHAMIDE [Suspect]
     Indication: OVARIAN GERM CELL CANCER
  3. DEXAMETHASONE(DEXAMETHASONE) [Concomitant]
  4. CISPLATIN [Suspect]
     Indication: OVARIAN GERM CELL CANCER
     Dosage: 20.00-MG/M2
  5. METHOTREXATE [Suspect]
     Indication: OVARIAN GERM CELL CANCER
  6. VINCRISTINE [Suspect]
     Indication: OVARIAN GERM CELL CANCER
  7. ONDANSETRON [Concomitant]
  8. BLEOMYCIN SULFATE [Suspect]
     Indication: OVARIAN GERM CELL CANCER
  9. DACTINOMYCIN [Suspect]
     Indication: OVARIAN GERM CELL CANCER

REACTIONS (10)
  - ALTERED STATE OF CONSCIOUSNESS [None]
  - OFF LABEL USE [None]
  - NYSTAGMUS [None]
  - TUBERCULOSIS OF CENTRAL NERVOUS SYSTEM [None]
  - MENINGISM [None]
  - HYPOKALAEMIA [None]
  - HYPOTENSION [None]
  - BLOOD HUMAN CHORIONIC GONADOTROPIN INCREASED [None]
  - NEUTROPENIC SEPSIS [None]
  - ENCEPHALITIS VIRAL [None]
